FAERS Safety Report 6039063-9 (Version None)
Quarter: 2009Q1

REPORT INFORMATION
  Report Type: 
  Country: None (occurrence: None)
  Receive Date: 20090115
  Receipt Date: 20080326
  Transmission Date: 20090719
  Serious: Yes (Hospitalization, Congenital Anomaly, Other)
  Sender: FDA-Public Use
  Company Number: FR-GILEAD-2006-0010037

PATIENT
  Sex: Female
  Weight: 2.63 kg

DRUGS (6)
  1. VIREAD [Suspect]
     Route: 064
     Dates: start: 20040520, end: 20040918
  2. RETROVIR [Suspect]
     Indication: PROPHYLAXIS AGAINST HIV INFECTION
     Route: 064
     Dates: start: 20040520, end: 20040918
  3. RETROVIR [Suspect]
     Route: 048
     Dates: start: 20040918, end: 20041005
  4. KALETRA [Suspect]
     Route: 064
     Dates: start: 20040520, end: 20040918
  5. VIRACEPT [Suspect]
     Route: 064
     Dates: end: 20040520
  6. COMBIVIR [Concomitant]
     Route: 064
     Dates: end: 20040520

REACTIONS (2)
  - ANAEMIA [None]
  - GLUCOSE-6-PHOSPHATE DEHYDROGENASE DEFICIENCY [None]
